FAERS Safety Report 4891094-8 (Version None)
Quarter: 2006Q1

REPORT INFORMATION
  Report Type: 
  Country: None (occurrence: None)
  Receive Date: 20060125
  Receipt Date: 20050222
  Transmission Date: 20060701
  Serious: Yes (Hospitalization, Other)
  Sender: FDA-Public Use
  Company Number: US-MERCK-0502USA03170

PATIENT
  Age: 29 Year
  Sex: Male

DRUGS (5)
  1. VIOXX [Suspect]
     Indication: ROTATOR CUFF SYNDROME
     Route: 048
     Dates: start: 20010301, end: 20030301
  2. VIOXX [Suspect]
     Route: 048
     Dates: start: 20011204, end: 20020422
  3. VIOXX [Suspect]
     Route: 048
     Dates: start: 20020423
  4. BEXTRA [Concomitant]
     Route: 065
     Dates: start: 20010301, end: 20030301
  5. CELEBREX [Concomitant]
     Route: 065
     Dates: start: 20010301, end: 20030301

REACTIONS (17)
  - ACUTE MYOCARDIAL INFARCTION [None]
  - BACK PAIN [None]
  - CARDIAC FAILURE CONGESTIVE [None]
  - CELLULITIS [None]
  - CHEST PAIN [None]
  - CORONARY ARTERY DISEASE [None]
  - DEPRESSION [None]
  - FURUNCLE [None]
  - HYPERLIPIDAEMIA [None]
  - HYPERTENSION [None]
  - INTERVERTEBRAL DISC PROTRUSION [None]
  - MUSCLE SPASMS [None]
  - MYOCARDIAL INFARCTION [None]
  - ROTATOR CUFF SYNDROME [None]
  - SLEEP DISORDER [None]
  - SPONDYLOLYSIS [None]
  - VENTRICULAR FIBRILLATION [None]
